FAERS Safety Report 18786650 (Version 5)
Quarter: 2021Q1

REPORT INFORMATION
  Report Type: Other
  Country: IL (occurrence: IL)
  Receive Date: 20210126
  Receipt Date: 20210218
  Transmission Date: 20210419
  Serious: Yes (Other)
  Sender: FDA-Public Use
  Company Number: IL-ROCHE-2753931

PATIENT
  Age: 58 Year
  Sex: Male

DRUGS (1)
  1. ROZLYTREK [Suspect]
     Active Substance: ENTRECTINIB
     Indication: NON-SMALL CELL LUNG CANCER
     Route: 048
     Dates: start: 20200831

REACTIONS (23)
  - Ill-defined disorder [Recovering/Resolving]
  - Mood altered [Recovering/Resolving]
  - Weight increased [Not Recovered/Not Resolved]
  - Weight increased [Recovering/Resolving]
  - Rash [Not Recovered/Not Resolved]
  - Vision blurred [Not Recovered/Not Resolved]
  - Visual impairment [Recovering/Resolving]
  - Visual impairment [Not Recovered/Not Resolved]
  - Urinary tract disorder [Not Recovered/Not Resolved]
  - Urinary retention [Not Recovered/Not Resolved]
  - Ageusia [Recovering/Resolving]
  - Oedema peripheral [Recovering/Resolving]
  - Vitamin D decreased [Unknown]
  - Sexual dysfunction [Not Recovered/Not Resolved]
  - Blood pressure decreased [Recovering/Resolving]
  - Constipation [Recovering/Resolving]
  - Gait disturbance [Unknown]
  - Gastrointestinal motility disorder [Not Recovered/Not Resolved]
  - Wound [Unknown]
  - Muscular weakness [Recovering/Resolving]
  - Dizziness [Unknown]
  - Urine flow decreased [Not Recovered/Not Resolved]
  - Blood creatinine increased [Unknown]

NARRATIVE: CASE EVENT DATE: 20200901
